FAERS Safety Report 11850585 (Version 1)
Quarter: 2015Q4

REPORT INFORMATION
  Report Type: Spontaneous
  Country: US (occurrence: US)
  Receive Date: 20151218
  Receipt Date: 20151218
  Transmission Date: 20160305
  Serious: No
  Sender: FDA-Public Use
  Company Number: US-JNJFOC-20151117266

PATIENT
  Age: 27 Year
  Sex: Male
  Weight: 81.65 kg

DRUGS (3)
  1. CORPLUS [Concomitant]
     Indication: NUTRITIONAL SUPPLEMENTATION
     Dosage: SINCE A YEAR
     Route: 065
  2. SUDAFED 24 HOUR [Suspect]
     Active Substance: PSEUDOEPHEDRINE HYDROCHLORIDE
     Route: 048
  3. SUDAFED 24 HOUR [Suspect]
     Active Substance: PSEUDOEPHEDRINE HYDROCHLORIDE
     Indication: NASOPHARYNGITIS
     Dosage: A TOTAL OF 3 PILLS
     Route: 048
     Dates: start: 20151115, end: 20151115

REACTIONS (3)
  - Dizziness [Recovering/Resolving]
  - Wrong drug administered [Recovering/Resolving]
  - Extra dose administered [Recovering/Resolving]

NARRATIVE: CASE EVENT DATE: 20151115
